FAERS Safety Report 9651881 (Version 1)
Quarter: 2013Q4

REPORT INFORMATION
  Report Type: Spontaneous
  Country: US (occurrence: US)
  Receive Date: 20131029
  Receipt Date: 20131029
  Transmission Date: 20140711
  Serious: No
  Sender: FDA-Public Use
  Company Number: US-ENDO PHARMACEUTICALS INC.-PMCO20120003

PATIENT
  Age: 72 Year
  Sex: Male
  Weight: 83.99 kg

DRUGS (1)
  1. PROMETHAZINE HYDROCHLORIDE WITH CODEINE SYRUP [Suspect]
     Indication: COUGH
     Dosage: UNK
     Route: 048
     Dates: start: 20120830, end: 20120830

REACTIONS (3)
  - Cough [Recovered/Resolved]
  - Insomnia [Recovered/Resolved]
  - Dry mouth [Recovered/Resolved]
